FAERS Safety Report 5426031-0 (Version None)
Quarter: 2007Q3

REPORT INFORMATION
  Report Type: 
  Country: None (occurrence: None)
  Receive Date: 20070824
  Receipt Date: 20070824
  Transmission Date: 20080115
  Serious: Yes (Death)
  Sender: FDA-Public Use
  Company Number: None

PATIENT
  Sex: Female
  Weight: 61.2356 kg

DRUGS (6)
  1. TARCEVA [Suspect]
     Indication: BREAST CANCER METASTATIC
     Dosage: 150MG ONCE QD PO
     Route: 048
     Dates: start: 20070709, end: 20070813
  2. LETROZOLE [Suspect]
     Indication: BREAST CANCER METASTATIC
     Dosage: 2.5MG ONCE QD PO
     Route: 048
     Dates: start: 20070709, end: 20070813
  3. NEXIUM [Concomitant]
  4. COMPAZINE [Concomitant]
  5. FERROUS SULFATE TAB [Concomitant]
  6. LORTAB [Concomitant]

REACTIONS (2)
  - FATIGUE [None]
  - PERIPHERAL COLDNESS [None]
